FAERS Safety Report 8503464-7 (Version None)
Quarter: 2012Q3

REPORT INFORMATION
  Report Type: 
  Country: None (occurrence: None)
  Receive Date: 20120711
  Receipt Date: 20120703
  Transmission Date: 20120928
  Serious: Yes (Other)
  Sender: FDA-Public Use
  Company Number: US-GLAXOSMITHKLINE-A0983229A

PATIENT
  Age: 60 Year
  Sex: Female

DRUGS (3)
  1. SPIRIVA [Concomitant]
  2. ADVAIR DISKUS 100/50 [Suspect]
     Indication: ASTHMA
     Dosage: 1PUFF TWICE PER DAY
     Route: 055
     Dates: start: 20120401, end: 20120401
  3. SYMBICORT [Concomitant]

REACTIONS (8)
  - GINGIVAL SWELLING [None]
  - DROOLING [None]
  - CHOKING [None]
  - DYSPNOEA [None]
  - SWOLLEN TONGUE [None]
  - THROAT TIGHTNESS [None]
  - HYPOAESTHESIA ORAL [None]
  - ORAL DISCOMFORT [None]
